FAERS Safety Report 25417559 (Version 1)
Quarter: 2025Q2

REPORT INFORMATION
  Report Type: Report from Study
  Country: US (occurrence: US)
  Receive Date: 20250610
  Receipt Date: 20250610
  Transmission Date: 20250716
  Serious: Yes (Other)
  Sender: BAUSCH AND LOMB
  Company Number: US-BAUSCHBL-2025BNL010188

PATIENT
  Age: 74 Year
  Sex: Male

DRUGS (1)
  1. MIEBO [Suspect]
     Active Substance: PERFLUOROHEXYLOCTANE
     Indication: Product used for unknown indication
     Route: 047
     Dates: start: 20241108

REACTIONS (2)
  - Surgery [Unknown]
  - Product dose omission in error [Unknown]
